FAERS Safety Report 7598464-8 (Version None)
Quarter: 2011Q3

REPORT INFORMATION
  Report Type: 
  Country: None (occurrence: None)
  Receive Date: 20110708
  Receipt Date: 20110629
  Transmission Date: 20111222
  Serious: Yes (Death, Hospitalization, Other)
  Sender: FDA-Public Use
  Company Number: US-ELI_LILLY_AND_COMPANY-US201106008942

PATIENT
  Sex: Female

DRUGS (1)
  1. GEMZAR [Suspect]
     Indication: PANCREATIC CARCINOMA
     Dosage: 1640 MG/M2, ON DAYS 1 AND 8
     Dates: start: 20100624, end: 20100718

REACTIONS (3)
  - DEATH [None]
  - ABDOMINAL PAIN [None]
  - DIARRHOEA [None]
